FAERS Safety Report 9901084 (Version 2)
Quarter: 2014Q1

REPORT INFORMATION
  Report Type: Spontaneous
  Country: US (occurrence: US)
  Receive Date: 20140217
  Receipt Date: 20140217
  Transmission Date: 20141002
  Serious: No
  Sender: FDA-Public Use
  Company Number: US-PFIZER INC-2014011237

PATIENT
  Age: 5 Year
  Sex: Female

DRUGS (1)
  1. QUILLIVANT XR [Suspect]
     Dosage: 4 ML, 1X/DAY
     Route: 048
     Dates: start: 20130913

REACTIONS (4)
  - Drug dispensing error [Unknown]
  - Wrong technique in drug usage process [Unknown]
  - Burning sensation [Unknown]
  - Off label use [Unknown]
